FAERS Safety Report 6555790-9 (Version None)
Quarter: 2010Q1

REPORT INFORMATION
  Report Type: 
  Country: None (occurrence: None)
  Receive Date: 20100128
  Receipt Date: 20100118
  Transmission Date: 20100710
  Serious: Yes (Hospitalization)
  Sender: FDA-Public Use
  Company Number: JP-ABBOTT-09P-087-0611256-00

PATIENT
  Age: 36 Year
  Sex: Male

DRUGS (1)
  1. SEVOFRANE [Suspect]
     Indication: DRUG USE FOR UNKNOWN INDICATION
     Route: 055

REACTIONS (2)
  - HEPATIC NECROSIS [None]
  - LIVER DISORDER [None]
